FAERS Safety Report 8523502-5 (Version None)
Quarter: 2012Q3

REPORT INFORMATION
  Report Type: 
  Country: None (occurrence: None)
  Receive Date: 20120709
  Receipt Date: 20120627
  Transmission Date: 20120928
  Serious: Yes (Other)
  Sender: FDA-Public Use
  Company Number: AUR-APL-2012-02674

PATIENT
  Age: 83 Year
  Sex: Female

DRUGS (4)
  1. ACETAMINOPHEN [Suspect]
     Indication: PRODUCT USED FOR UNKNOWN INDICATION
     Dosage: 4 GM (1 GM, 4 IN 1 D)
  2. FLOXACILLIN SODIUM [Suspect]
     Indication: WOUND INFECTION
     Dosage: 8 GM (2 GM, 3 IN 1 D),INTRAVENOUS
     Route: 042
  3. METFFORMIN HYDROCHLORIDE [Suspect]
     Indication: PRODUCT USED FOR UNKNOWN INDICATION
  4. IRBESARTAN [Suspect]
     Indication: PRODUCT USED FOR UNKNOWN INDICATION

REACTIONS (7)
  - PYROGLUTAMATE INCREASED [None]
  - METABOLIC ACIDOSIS [None]
  - WOUND INFECTION [None]
  - HYPERKALAEMIA [None]
  - HIP FRACTURE [None]
  - ANION GAP INCREASED [None]
  - HYPERVENTILATION [None]
